FAERS Safety Report 8599462 (Version 3)
Quarter: 2014Q2

REPORT INFORMATION
  Report Type: Spontaneous
  Country: US (occurrence: US)
  Receive Date: 20120605
  Receipt Date: 20140411
  Transmission Date: 20141212
  Serious: Yes (Hospitalization, Other)
  Sender: FDA-Public Use
  Company Number: US-ROCHE-1073574

PATIENT
  Age: 17 Year
  Sex: Male

DRUGS (1)
  1. ACCUTANE [Suspect]
     Indication: ACNE
     Route: 065
     Dates: start: 19920309, end: 19920817

REACTIONS (7)
  - Crohn^s disease [Unknown]
  - Inflammatory bowel disease [Unknown]
  - Injury [Unknown]
  - Intestinal obstruction [Unknown]
  - Acne [Unknown]
  - Cheilitis [Unknown]
  - Dry skin [Unknown]
